FAERS Safety Report 4998253-4 (Version None)
Quarter: 2006Q2

REPORT INFORMATION
  Report Type: 
  Country: None (occurrence: None)
  Receive Date: 20060508
  Receipt Date: 20060411
  Transmission Date: 20061013
  Serious: Yes (Hospitalization)
  Sender: FDA-Public Use
  Company Number: 2005-00212

PATIENT
  Age: 77 Year
  Sex: Male
  Weight: 83 kg

DRUGS (13)
  1. VELCADE [Suspect]
     Indication: MULTIPLE MYELOMA
     Dosage: 1.40 MG, IV BOLUS
     Route: 040
     Dates: start: 20050118, end: 20050127
  2. ARSENIC TRIOXIDE (ARSENIC TRIOXIDE) [Suspect]
     Indication: MULTIPLE MYELOMA
     Dosage: 10.00 MG, INTRAVENOUS
     Route: 042
     Dates: start: 20050118, end: 20050127
  3. ZOMETA [Concomitant]
  4. ARANESP [Concomitant]
  5. PRINIVIL [Concomitant]
  6. TOPROL-XL [Concomitant]
  7. ECOTRIN (ACETYLSALICYLIC ACID) [Concomitant]
  8. ASCORBIC ACID [Concomitant]
  9. LEVAQUIN [Concomitant]
  10. ALDACTONE [Concomitant]
  11. PREDNISONE TAB [Concomitant]
  12. FAMVIR [Concomitant]
  13. NITROL [Concomitant]

REACTIONS (17)
  - AORTIC CALCIFICATION [None]
  - AORTIC STENOSIS [None]
  - ATRIOVENTRICULAR BLOCK FIRST DEGREE [None]
  - CARDIAC DISORDER [None]
  - CHEST DISCOMFORT [None]
  - DILATATION ATRIAL [None]
  - DYSPNOEA [None]
  - ELECTROCARDIOGRAM ST SEGMENT ELEVATION [None]
  - LUNG INFILTRATION [None]
  - MUSCULOSKELETAL PAIN [None]
  - ORTHOPNOEA [None]
  - PLEURITIC PAIN [None]
  - QRS AXIS ABNORMAL [None]
  - RIGHT VENTRICULAR SYSTOLIC PRESSURE INCREASED [None]
  - SINUS DISORDER [None]
  - TRICUSPID VALVE INCOMPETENCE [None]
  - VENTRICULAR HYPERTROPHY [None]
